FAERS Safety Report 24841015 (Version 1)
Quarter: 2025Q1

REPORT INFORMATION
  Report Type: Spontaneous
  Country: CN (occurrence: CN)
  Receive Date: 20250114
  Receipt Date: 20250114
  Transmission Date: 20250408
  Serious: Yes (Other)
  Sender: PFIZER
  Company Number: CN-PFIZER INC-PV202500004023

PATIENT
  Age: 67 Year
  Sex: Male
  Weight: 74 kg

DRUGS (4)
  1. LINEZOLID [Suspect]
     Active Substance: LINEZOLID
     Indication: Klebsiella infection
     Dosage: 0.6 G, 2X/DAY (Q12H)
     Route: 041
     Dates: start: 20241211, end: 20241216
  2. LINEZOLID [Suspect]
     Active Substance: LINEZOLID
     Indication: Soft tissue infection
  3. MEROPENEM [Concomitant]
     Active Substance: MEROPENEM
     Indication: Klebsiella infection
     Dosage: 1 G, 2X/DAY (Q12H)
     Route: 041
     Dates: start: 20241204, end: 20241220
  4. MEROPENEM [Concomitant]
     Active Substance: MEROPENEM
     Indication: Soft tissue infection

REACTIONS (1)
  - Blood pressure increased [Recovering/Resolving]

NARRATIVE: CASE EVENT DATE: 20241213
